FAERS Safety Report 8005104-2 (Version None)
Quarter: 2011Q4

REPORT INFORMATION
  Report Type: 
  Country: None (occurrence: None)
  Receive Date: 20111223
  Receipt Date: 20111209
  Transmission Date: 20120403
  Serious: Yes (Hospitalization)
  Sender: FDA-Public Use
  Company Number: PHHY2011JP106300

PATIENT
  Age: 61 Year
  Sex: Female

DRUGS (1)
  1. DESFERAL [Suspect]
     Indication: IRON OVERLOAD
     Route: 030

REACTIONS (6)
  - MYELODYSPLASTIC SYNDROME [None]
  - CONDITION AGGRAVATED [None]
  - INFECTION [None]
  - C-REACTIVE PROTEIN INCREASED [None]
  - NEOPLASM MALIGNANT [None]
  - PYREXIA [None]
